FAERS Safety Report 20324442 (Version 1)
Quarter: 2022Q1

REPORT INFORMATION
  Report Type: Spontaneous
  Country: None (occurrence: FR)
  Receive Date: 20220111
  Receipt Date: 20220111
  Transmission Date: 20220423
  Serious: Yes (Other)
  Sender: FDA-Public Use
  Company Number: FR-AFSSAPS-AVNT20211446

PATIENT
  Age: 19 Year
  Sex: Male

DRUGS (2)
  1. NITROUS OXIDE [Suspect]
     Active Substance: NITROUS OXIDE
     Indication: Substance use disorder
     Route: 055
  2. OXYGEN [Suspect]
     Active Substance: OXYGEN

REACTIONS (1)
  - Hyperhomocysteinaemia [Recovering/Resolving]
